FAERS Safety Report 10021228 (Version 1)
Quarter: 2014Q1

REPORT INFORMATION
  Report Type: Report from Study
  Country: US (occurrence: US)
  Receive Date: 20140319
  Receipt Date: 20140319
  Transmission Date: 20141002
  Serious: Yes (Other)
  Sender: FDA-Public Use
  Company Number: US-ASTRAZENECA-2014SE17804

PATIENT
  Age: 72 Year
  Sex: Male

DRUGS (1)
  1. BRILINTA [Suspect]
     Indication: ACUTE CORONARY SYNDROME
     Route: 048

REACTIONS (3)
  - Adverse drug reaction [Unknown]
  - Dyspnoea [Unknown]
  - Epistaxis [Unknown]
